FAERS Safety Report 9504583 (Version 2)
Quarter: 2013Q3

REPORT INFORMATION
  Report Type: Spontaneous
  Country: CA (occurrence: CA)
  Receive Date: 20130906
  Receipt Date: 20130927
  Transmission Date: 20140515
  Serious: No
  Sender: FDA-Public Use
  Company Number: CA-ASTRAZENECA-2013SE66280

PATIENT
  Age: 75 Year
  Sex: Male

DRUGS (4)
  1. CRESTOR [Suspect]
     Dosage: ONCE DAILY
     Route: 048
     Dates: start: 2010, end: 201307
  2. TOLOXIN [Concomitant]
  3. APO-METOPROLOL [Concomitant]
  4. WARFARIN [Concomitant]

REACTIONS (1)
  - Breast mass [Not Recovered/Not Resolved]
